FAERS Safety Report 7069341-6 (Version None)
Quarter: 2010Q4

REPORT INFORMATION
  Report Type: 
  Country: None (occurrence: None)
  Receive Date: 20101028
  Receipt Date: 20101025
  Transmission Date: 20110411
  Serious: Yes (Hospitalization)
  Sender: FDA-Public Use
  Company Number: PHHY2010US34330

PATIENT
  Sex: Female

DRUGS (7)
  1. EXTAVIA [Suspect]
     Indication: MULTIPLE SCLEROSIS
     Dosage: 0.0625 MG, QOD
     Route: 058
  2. EXTAVIA [Suspect]
     Dosage: 0.3 MG, QOD
     Route: 058
     Dates: start: 20100504
  3. EXTAVIA [Suspect]
     Dosage: ONCE A WEEK,QOD
     Route: 058
     Dates: start: 20100522
  4. HYDROCHLOROTHIAZIDE [Concomitant]
     Indication: HYPERTENSION
     Dosage: 25 MG, QD
     Route: 048
     Dates: start: 20070319
  5. HYDROCHLOROTHIAZIDE [Concomitant]
     Dosage: 12.5 MG, QD
  6. MULTI-VITAMINS [Concomitant]
  7. VITAMIN B-12 [Concomitant]

REACTIONS (13)
  - ABASIA [None]
  - BALANCE DISORDER [None]
  - DIZZINESS [None]
  - FATIGUE [None]
  - HYPERHIDROSIS [None]
  - LIMB DISCOMFORT [None]
  - MOVEMENT DISORDER [None]
  - MUSCULAR WEAKNESS [None]
  - MUSCULOSKELETAL STIFFNESS [None]
  - NAUSEA [None]
  - SENSATION OF HEAVINESS [None]
  - VERTIGO [None]
  - VOMITING [None]
